FAERS Safety Report 6302817-5 (Version None)
Quarter: 2009Q3

REPORT INFORMATION
  Report Type: 
  Country: None (occurrence: None)
  Receive Date: 20090810
  Receipt Date: 20090806
  Transmission Date: 20100115
  Serious: Yes (Disabling, Other)
  Sender: FDA-Public Use
  Company Number: US-ROXANE LABORATORIES, INC.-2009-RO-00787RO

PATIENT
  Age: 49 Year
  Sex: Female

DRUGS (6)
  1. METHOTREXATE [Suspect]
     Indication: RHEUMATOID ARTHRITIS
  2. INFLIXIMAB [Suspect]
     Indication: RHEUMATOID ARTHRITIS
  3. SULFASALAZINE [Suspect]
     Indication: RHEUMATOID ARTHRITIS
  4. AZITHROMYCIN [Concomitant]
     Indication: MYCOBACTERIUM MARINUM INFECTION
  5. ETHAMBUTOL [Concomitant]
     Indication: MYCOBACTERIUM MARINUM INFECTION
  6. TRIMETHOPRIM + SULFAMETHOXAZOLE [Concomitant]
     Indication: MYCOBACTERIUM MARINUM INFECTION

REACTIONS (3)
  - LIMB INJURY [None]
  - MYCOBACTERIUM MARINUM INFECTION [None]
  - SKIN LACERATION [None]
